FAERS Safety Report 4478386-1 (Version None)
Quarter: 2004Q4

REPORT INFORMATION
  Report Type: 
  Country: None (occurrence: None)
  Receive Date: 20041019
  Receipt Date: 20041011
  Transmission Date: 20050328
  Serious: Yes (Hospitalization)
  Sender: FDA-Public Use
  Company Number: PHRM2004FR03088

PATIENT
  Age: 66 Year
  Sex: Male
  Weight: 76 kg

DRUGS (2)
  1. LAMISIL [Suspect]
     Route: 048
     Dates: start: 20040623, end: 20040708
  2. BI-PROFENID [Concomitant]
     Route: 048
     Dates: start: 20040408, end: 20040501

REACTIONS (9)
  - CONDITION AGGRAVATED [None]
  - DERMATITIS EXFOLIATIVE [None]
  - HYPERKERATOSIS PALMARIS AND PLANTARIS [None]
  - NAIL HYPERTROPHY [None]
  - ONYCHOLYSIS [None]
  - PSORIASIS [None]
  - SKIN DESQUAMATION [None]
  - SKIN WARM [None]
  - TRICHORRHEXIS [None]
